FAERS Safety Report 6807173-1 (Version None)
Quarter: 2010Q2

REPORT INFORMATION
  Report Type: 
  Country: None (occurrence: None)
  Receive Date: 20100629
  Receipt Date: 20080912
  Transmission Date: 20101027
  Serious: No
  Sender: FDA-Public Use
  Company Number: US-PFIZER INC-2008049084

PATIENT
  Sex: Male
  Weight: 11 kg

DRUGS (11)
  1. ZYVOX [Suspect]
     Indication: ENTEROCOCCAL INFECTION
     Route: 042
     Dates: start: 20080514
  2. FOLIC ACID [Concomitant]
  3. VITAMIN TAB [Concomitant]
  4. CALCITRIOL [Concomitant]
  5. EPOGEN [Concomitant]
  6. FERROUS GLUCONATE [Concomitant]
  7. ENOXAPARIN [Concomitant]
  8. AMPHOTERICIN B [Concomitant]
  9. FLUCONAZOLE [Concomitant]
  10. CALCIUM CARBONATE [Concomitant]
  11. KAYEXALATE [Concomitant]

REACTIONS (2)
  - DECREASED APPETITE [None]
  - FLUID INTAKE REDUCED [None]
